FAERS Safety Report 10707076 (Version 1)
Quarter: 2015Q1

REPORT INFORMATION
  Report Type: Spontaneous
  Country: US (occurrence: None)
  Receive Date: 20150112
  Receipt Date: 20150112
  Transmission Date: 20150721
  Serious: Yes (Other)
  Sender: FDA-Public Use
  Company Number: None

PATIENT
  Age: 23 Year
  Sex: Female
  Weight: 58.06 kg

DRUGS (1)
  1. NEXPLANON [Suspect]
     Active Substance: ETONOGESTREL

REACTIONS (6)
  - Alopecia [None]
  - Self-injurious ideation [None]
  - Dizziness [None]
  - Asthenia [None]
  - Depression [None]
  - Menorrhagia [None]

NARRATIVE: CASE EVENT DATE: 20150104
